FAERS Safety Report 5201249-0 (Version None)
Quarter: 2007Q1

REPORT INFORMATION
  Report Type: 
  Country: None (occurrence: None)
  Receive Date: 20070103
  Receipt Date: 20061127
  Transmission Date: 20070707
  Serious: Yes (Hospitalization)
  Sender: FDA-Public Use
  Company Number: FSC_0010_2006

PATIENT
  Age: 82 Year
  Sex: Male

DRUGS (8)
  1. ISOPTIN [Suspect]
     Indication: ACUTE PULMONARY OEDEMA
     Dosage: 240 MG QDAY PO
     Route: 048
     Dates: start: 20051201, end: 20060601
  2. ISOPTIN [Suspect]
     Indication: ACUTE PULMONARY OEDEMA
     Dosage: 40 MG TID PO
     Route: 048
     Dates: start: 20060601, end: 20060707
  3. CANDESARTAN CILEXETIL [Suspect]
     Indication: DRUG USE FOR UNKNOWN INDICATION
     Dosage: 1 DF PO
     Route: 048
     Dates: end: 20060707
  4. BISOPROLOL FUMARATE [Suspect]
     Indication: DRUG USE FOR UNKNOWN INDICATION
     Dosage: 5 MG Q DAY PO
     Route: 048
  5. CLOPIDOGREL BISULFATE [Concomitant]
  6. AMIODARONE HCL [Concomitant]
  7. BUFLOMEDIL HYDROCHLORIDE [Concomitant]
  8. PRAVASTATIN SODIUM [Concomitant]

REACTIONS (13)
  - ANAEMIA [None]
  - FALL [None]
  - HEAD INJURY [None]
  - HYPERKALAEMIA [None]
  - LIMB INJURY [None]
  - LOSS OF CONSCIOUSNESS [None]
  - MALAISE [None]
  - ORTHOSTATIC HYPOTENSION [None]
  - PALLOR [None]
  - RENAL FAILURE [None]
  - SYNCOPE [None]
  - VERTIGO [None]
  - VOMITING [None]
